FAERS Safety Report 10029618 (Version 1)
Quarter: 2014Q1

REPORT INFORMATION
  Report Type: Spontaneous
  Country: US (occurrence: None)
  Receive Date: 20140320
  Receipt Date: 20140320
  Transmission Date: 20141002
  Serious: Yes (Hospitalization)
  Sender: FDA-Public Use
  Company Number: None

PATIENT
  Age: 53 Year
  Sex: Female
  Weight: 71 kg

DRUGS (2)
  1. CYTARABINE [Suspect]
     Dates: end: 20140307
  2. IDARUBICIN [Suspect]
     Dates: end: 20140307

REACTIONS (1)
  - Lobar pneumonia [None]
